FAERS Safety Report 24068891 (Version 1)
Quarter: 2024Q3

REPORT INFORMATION
  Report Type: Report from Study
  Country: US (occurrence: US)
  Receive Date: 20240710
  Receipt Date: 20240710
  Transmission Date: 20241017
  Serious: No
  Sender: ROCHE
  Company Number: US-ROCHE-3533789

PATIENT
  Age: 56 Year
  Sex: Male
  Weight: 136.08 kg

DRUGS (4)
  1. VABYSMO [Suspect]
     Active Substance: FARICIMAB\FARICIMAB-SVOA
     Indication: Eye haemorrhage
     Dosage: INJECT IN BOTH EYES EVERY 4-6 WEEKS FOR 1 YEAR, 2.6 MG VIAL?LAST DOSE WAS ON 25/MAR/2024.
     Route: 047
     Dates: start: 202309
  2. VABYSMO [Suspect]
     Active Substance: FARICIMAB\FARICIMAB-SVOA
     Indication: Diabetic retinopathy
  3. VABYSMO [Suspect]
     Active Substance: FARICIMAB\FARICIMAB-SVOA
     Indication: Macular oedema
  4. METFORMIN [Concomitant]
     Active Substance: METFORMIN HYDROCHLORIDE
     Indication: Diabetes mellitus
     Route: 048

REACTIONS (1)
  - Cataract [Not Recovered/Not Resolved]
